FAERS Safety Report 4465367-7 (Version None)
Quarter: 2004Q4

REPORT INFORMATION
  Report Type: 
  Country: None (occurrence: None)
  Receive Date: 20041004
  Receipt Date: 20040913
  Transmission Date: 20050328
  Serious: Yes (Other)
  Sender: FDA-Public Use
  Company Number: PHNU2004DE03226

PATIENT
  Age: 53 Year
  Sex: Female
  Weight: 130 kg

DRUGS (9)
  1. IMMUNOSPORIN [Suspect]
     Indication: RHEUMATOID ARTHRITIS
     Dosage: 100 MG, BID
     Route: 048
     Dates: start: 20040501, end: 20040701
  2. ACE INHIBITOR NOS [Concomitant]
  3. METHOTREXATE [Concomitant]
     Dosage: 35 MG PER WEEK
     Route: 058
     Dates: start: 20031001
  4. PREDNISOLONE [Concomitant]
     Dosage: 15 MG DAILY
     Route: 048
     Dates: start: 20030501
  5. SPIRO [Concomitant]
     Dosage: .5 DF, QD
     Route: 048
  6. FURO [Concomitant]
     Dosage: .5 DF, QD
     Route: 048
  7. ALLOPURINOL [Concomitant]
     Dosage: 300 MG DAILY
     Route: 048
  8. SIMVASTATIN [Concomitant]
     Dosage: 20 MG DAILY
     Route: 048
  9. BISOPROLOL FUMARATE [Concomitant]
     Dosage: 5 MG DAILY
     Route: 048

REACTIONS (3)
  - CARDIAC FAILURE [None]
  - HYPERTENSIVE CRISIS [None]
  - LEFT VENTRICULAR FAILURE [None]
